FAERS Safety Report 9263743 (Version 1)
Quarter: 2013Q2

REPORT INFORMATION
  Report Type: Spontaneous
  Country: US (occurrence: None)
  Receive Date: 20130429
  Receipt Date: 20130429
  Transmission Date: 20140414
  Serious: Yes (Other)
  Sender: FDA-Public Use
  Company Number: None

PATIENT
  Age: 47 Year
  Sex: Female
  Weight: 81.65 kg

DRUGS (3)
  1. QSYMIA [Suspect]
     Indication: BLOOD CHOLESTEROL INCREASED
     Route: 048
     Dates: start: 20130408, end: 20130417
  2. QSYMIA [Suspect]
     Indication: OVERWEIGHT
     Route: 048
     Dates: start: 20130408, end: 20130417
  3. QSYMIA [Suspect]
     Indication: INSULIN RESISTANCE
     Route: 048
     Dates: start: 20130408, end: 20130417

REACTIONS (3)
  - Angle closure glaucoma [None]
  - Dysgeusia [None]
  - Visual acuity reduced [None]
